FAERS Safety Report 22251267 (Version 1)
Quarter: 2023Q2

REPORT INFORMATION
  Report Type: Spontaneous
  Country: JP (occurrence: JP)
  Receive Date: 20230425
  Receipt Date: 20230425
  Transmission Date: 20230721
  Serious: Yes (Other)
  Sender: FDA-Public Use
  Company Number: JP-SCIEGENP-2023SCLIT00209

PATIENT
  Age: 80 Year
  Sex: Female

DRUGS (2)
  1. CLOPIDOGREL [Suspect]
     Active Substance: CLOPIDOGREL BISULFATE
     Indication: Carotid artery stenosis
     Route: 065
  2. ASPIRIN [Suspect]
     Active Substance: ASPIRIN
     Indication: Carotid artery stenosis
     Route: 065

REACTIONS (2)
  - Carotid artery stenosis [Unknown]
  - Condition aggravated [Unknown]
